FAERS Safety Report 6970221-2 (Version None)
Quarter: 2010Q3

REPORT INFORMATION
  Report Type: 
  Country: None (occurrence: None)
  Receive Date: 20100908
  Receipt Date: 20100830
  Transmission Date: 20110219
  Serious: Yes (Other)
  Sender: FDA-Public Use
  Company Number: JP-ASTRAZENECA-2010SE36434

PATIENT
  Age: 26 Year
  Sex: Male

DRUGS (7)
  1. SEROQUEL [Suspect]
     Route: 048
     Dates: start: 20100708, end: 20100714
  2. SEROQUEL [Suspect]
     Route: 048
     Dates: start: 20100715, end: 20100729
  3. TASMOLIN [Concomitant]
     Route: 065
     Dates: start: 20100408
  4. RIVOTRIL [Concomitant]
     Route: 065
     Dates: start: 20100527
  5. U PAN [Concomitant]
     Route: 065
     Dates: start: 20100408
  6. BLONANSERIN [Concomitant]
     Route: 065
     Dates: start: 20100412
  7. STMERIN D [Concomitant]
     Route: 065
     Dates: start: 20100610

REACTIONS (1)
  - INTERSTITIAL LUNG DISEASE [None]
